FAERS Safety Report 13297388 (Version 1)
Quarter: 2017Q1

REPORT INFORMATION
  Report Type: Spontaneous
  Country: SK (occurrence: SK)
  Receive Date: 20170306
  Receipt Date: 20170306
  Transmission Date: 20170428
  Serious: Yes (Hospitalization)
  Sender: FDA-Public Use
  Company Number: SK-CONCORDIA PHARMACEUTICALS INC.-GSH201702-001417

PATIENT
  Age: 67 Year
  Sex: Female

DRUGS (2)
  1. ACECLOFENAC [Concomitant]
     Active Substance: ACECLOFENAC
     Dates: start: 20161227, end: 20170109
  2. PLAQUENIL [Suspect]
     Active Substance: HYDROXYCHLOROQUINE SULFATE
     Indication: PRODUCT USED FOR UNKNOWN INDICATION
     Route: 048
     Dates: start: 20161227, end: 20170109

REACTIONS (1)
  - Rash papular [Recovered/Resolved]

NARRATIVE: CASE EVENT DATE: 201701
